FAERS Safety Report 10064967 (Version 1)
Quarter: 2014Q2

REPORT INFORMATION
  Report Type: Spontaneous
  Country: US (occurrence: None)
  Receive Date: 20140407
  Receipt Date: 20140407
  Transmission Date: 20141212
  Serious: Yes (Life-Threatening, Hospitalization)
  Sender: FDA-Public Use
  Company Number: None

PATIENT
  Age: 69 Year
  Sex: Male
  Weight: 106.8 kg

DRUGS (1)
  1. LEUPROLIDE [Suspect]
     Indication: PROSTATE CANCER
     Dosage: 22.5 MG?UD?SQ
     Dates: start: 20131203, end: 20131203

REACTIONS (1)
  - Anaphylactic shock [None]
